FAERS Safety Report 8185332-6 (Version None)
Quarter: 2012Q1

REPORT INFORMATION
  Report Type: 
  Country: None (occurrence: None)
  Receive Date: 20120305
  Receipt Date: 20120227
  Transmission Date: 20120608
  Serious: Yes (Other)
  Sender: FDA-Public Use
  Company Number: PHHY2012SE017844

PATIENT
  Sex: Male
  Weight: 82 kg

DRUGS (5)
  1. LAMICTAL [Concomitant]
     Dosage: UNK
  2. ZOMETA [Suspect]
     Dosage: 4 MG/5ML, EVERY FORTH TO SIXTH WEEK
     Dates: start: 20091125
  3. FUROSEMIDE [Concomitant]
     Dosage: UNK
  4. TORISEL [Concomitant]
     Dosage: UNK
  5. OXYCONTIN [Concomitant]
     Dosage: UNK

REACTIONS (4)
  - BLOOD CALCIUM DECREASED [None]
  - OSTEOMYELITIS [None]
  - PAIN [None]
  - TOOTH INFECTION [None]
